FAERS Safety Report 4372836-7 (Version None)
Quarter: 2004Q2

REPORT INFORMATION
  Report Type: 
  Country: None (occurrence: None)
  Receive Date: 20040608
  Receipt Date: 20040527
  Transmission Date: 20050107
  Serious: Yes (Hospitalization)
  Sender: FDA-Public Use
  Company Number: FR-BRISTOL-MYERS SQUIBB COMPANY-12598686

PATIENT
  Age: 32 Year
  Sex: Male

DRUGS (2)
  1. CISPLATIN [Suspect]
     Indication: METASTATIC MALIGNANT MELANOMA
     Dosage: INITIAL DOSE: 14-APR-2004
     Route: 042
     Dates: start: 20040512, end: 20040512
  2. TEMODAL [Suspect]
     Indication: METASTATIC MALIGNANT MELANOMA
     Dosage: DAILY X5 PER CYCLE INITIAL DOSE: 14-APR-2004
     Route: 048
     Dates: start: 20040512, end: 20040512

REACTIONS (2)
  - ABDOMINAL PAIN [None]
  - PYREXIA [None]
